FAERS Safety Report 12632583 (Version 2)
Quarter: 2016Q3

REPORT INFORMATION
  Report Type: Spontaneous
  Country: US (occurrence: US)
  Receive Date: 20160808
  Receipt Date: 20160808
  Transmission Date: 20161109
  Serious: No
  Sender: FDA-Public Use
  Company Number: US-BEH-2015056121

PATIENT
  Sex: Female
  Weight: 78 kg

DRUGS (17)
  1. HIZENTRA [Suspect]
     Active Substance: HUMAN IMMUNOGLOBULIN G
     Indication: ASTHMA-CHRONIC OBSTRUCTIVE PULMONARY DISEASE OVERLAP SYNDROME
     Route: 058
  2. LIDOCAINE. [Concomitant]
     Active Substance: LIDOCAINE
  3. EPIPEN [Concomitant]
     Active Substance: EPINEPHRINE
  4. AUGMENTIN [Concomitant]
     Active Substance: AMOXICILLIN\CLAVULANATE POTASSIUM
  5. FENTANYL. [Concomitant]
     Active Substance: FENTANYL
  6. DILAUDID [Concomitant]
     Active Substance: HYDROMORPHONE HYDROCHLORIDE
  7. PANTOPRAZOLE [Concomitant]
     Active Substance: PANTOPRAZOLE SODIUM
  8. DIPHENHYDRAMINE. [Concomitant]
     Active Substance: DIPHENHYDRAMINE
  9. METOCLOPRAMIDE. [Concomitant]
     Active Substance: METOCLOPRAMIDE
  10. LEVOTHYROXINE. [Concomitant]
     Active Substance: LEVOTHYROXINE
  11. ACETAMINOPHEN. [Concomitant]
     Active Substance: ACETAMINOPHEN
  12. LIBRAX [Concomitant]
     Active Substance: CHLORDIAZEPOXIDE HYDROCHLORIDE\CLIDINIUM BROMIDE
  13. PLAQUENIL [Concomitant]
     Active Substance: HYDROXYCHLOROQUINE SULFATE
  14. KEPPRA [Concomitant]
     Active Substance: LEVETIRACETAM
  15. HIZENTRA [Suspect]
     Active Substance: HUMAN IMMUNOGLOBULIN G
     Indication: ASTHMA-CHRONIC OBSTRUCTIVE PULMONARY DISEASE OVERLAP SYNDROME
     Route: 058
  16. COUMADIN [Concomitant]
     Active Substance: WARFARIN SODIUM
  17. AMITRIPTYLINE [Concomitant]
     Active Substance: AMITRIPTYLINE

REACTIONS (2)
  - Cystitis [Unknown]
  - Bronchitis [Unknown]
